FAERS Safety Report 16469585 (Version 1)
Quarter: 2019Q3

REPORT INFORMATION
  Report Type: Spontaneous
  Country: US (occurrence: US)
  Receive Date: 20190622
  Receipt Date: 20190622
  Transmission Date: 20191004
  Serious: Yes (Disabling, Other)
  Sender: FDA-Public Use
  Company Number: None

PATIENT
  Age: 38 Year
  Sex: Male
  Weight: 99 kg

DRUGS (3)
  1. IBUPROFEN 800 MG TABLET [Suspect]
     Active Substance: IBUPROFEN
     Indication: BACK PAIN
     Dosage: ?          QUANTITY:1 TABLET(S);?
     Route: 048
  2. IBUPROFEN 800 MG TABLET [Suspect]
     Active Substance: IBUPROFEN
     Indication: ARTHRALGIA
     Dosage: ?          QUANTITY:1 TABLET(S);?
     Route: 048
  3. IBUPROFEN 800 MG TABLET [Suspect]
     Active Substance: IBUPROFEN
     Indication: ABDOMINAL PAIN
     Dosage: ?          QUANTITY:1 TABLET(S);?
     Route: 048

REACTIONS (3)
  - Treatment failure [None]
  - Anal haemorrhage [None]
  - Gastrointestinal ulcer haemorrhage [None]

NARRATIVE: CASE EVENT DATE: 20190323
